FAERS Safety Report 5775494-X (Version None)
Quarter: 2008Q2

REPORT INFORMATION
  Report Type: 
  Country: None (occurrence: None)
  Receive Date: 20080601
  Receipt Date: 20080302
  Transmission Date: 20081010
  Serious: No
  Sender: FDA-Public Use
  Company Number: US200711001943

PATIENT
  Age: 54 Year
  Sex: Female
  Weight: 90.2 kg

DRUGS (18)
  1. BYETTA [Suspect]
     Indication: TYPE 2 DIABETES MELLITUS
     Dosage: 5 UG, 2/D, SUBCUTANEOUS ; 10 UG, 2/D, SUBCUTANEOUS
     Route: 058
     Dates: start: 20051101, end: 20051201
  2. BYETTA [Suspect]
     Indication: TYPE 2 DIABETES MELLITUS
     Dosage: 5 UG, 2/D, SUBCUTANEOUS ; 10 UG, 2/D, SUBCUTANEOUS
     Route: 058
     Dates: start: 20051201
  3. LANTUS [Concomitant]
  4. HUMALOG [Concomitant]
  5. PRANDIN (DEFLAZACORT) [Concomitant]
  6. TRICOR [Concomitant]
  7. ZETIA [Concomitant]
  8. LITHIUM CARBONATE [Concomitant]
  9. ASPIRIN [Concomitant]
  10. COZAAR [Concomitant]
  11. SYNTHROID [Concomitant]
  12. COREG [Concomitant]
  13. PLAVIX [Concomitant]
  14. CLONOPIN [Concomitant]
  15. SEROQUEL [Concomitant]
  16. LISINOPRIL [Concomitant]
  17. NEXIUM [Concomitant]
  18. MYLANTA (CALCIUM CARBONATE) [Concomitant]

REACTIONS (5)
  - ABDOMINAL DISCOMFORT [None]
  - MUSCLE SPASMS [None]
  - NAUSEA [None]
  - REFLUX OESOPHAGITIS [None]
  - WEIGHT DECREASED [None]
